FAERS Safety Report 4285565-5 (Version None)
Quarter: 2004Q1

REPORT INFORMATION
  Report Type: 
  Country: None (occurrence: None)
  Receive Date: 20040204
  Receipt Date: 20040120
  Transmission Date: 20041129
  Serious: Yes (Death)
  Sender: FDA-Public Use
  Company Number: 2004-00249

PATIENT
  Age: 38 Year
  Sex: Female

DRUGS (5)
  1. CLONAZEPAM [Suspect]
     Dosage: 123 MG, ORAL
     Route: 048
     Dates: end: 20010301
  2. OXYCODONE HCL [Suspect]
     Dosage: 65 MG, ORAL
     Route: 048
     Dates: end: 20010301
  3. TRAZODONE HCL [Concomitant]
  4. NICOTINE [Concomitant]
  5. CANNABINOIDS [Concomitant]

REACTIONS (3)
  - DRUG INTERACTION INHIBITION [None]
  - DRUG INTERACTION POTENTIATION [None]
  - OVERDOSE [None]
